FAERS Safety Report 8811107 (Version 2)
Quarter: 2013Q1

REPORT INFORMATION
  Report Type: Spontaneous
  Country: US (occurrence: US)
  Receive Date: 20120927
  Receipt Date: 20130306
  Transmission Date: 20140127
  Serious: Yes (Other)
  Sender: FDA-Public Use
  Company Number: US-009507513-2012SP023751

PATIENT
  Sex: Female

DRUGS (5)
  1. REBETOL [Suspect]
     Indication: HEPATITIS C
     Dosage: UNK, UNKNOWN
     Route: 065
     Dates: start: 20110301, end: 20110401
  2. REBETOL [Suspect]
     Dosage: UNK, UNKNOWN
     Route: 065
     Dates: start: 20120330
  3. VICTRELIS [Suspect]
     Indication: HEPATITIS C
     Dosage: UNK
     Dates: start: 20120427
  4. PEGASYS [Suspect]
     Indication: HEPATITIS C
     Dosage: UNK UNK, UNKNOWN
     Route: 065
     Dates: start: 20110301, end: 20110401
  5. PEGASYS [Suspect]
     Dosage: UNK UNK, UNKNOWN
     Route: 065
     Dates: start: 20120330, end: 20130301

REACTIONS (20)
  - Alcohol abuse [Unknown]
  - Suicide attempt [Unknown]
  - Memory impairment [Unknown]
  - Influenza [Unknown]
  - Arthralgia [Unknown]
  - Pain [Unknown]
  - Somnolence [Unknown]
  - Alopecia [Unknown]
  - Dysgeusia [Unknown]
  - Decreased appetite [Unknown]
  - Cough [Unknown]
  - Gastrointestinal disorder [Unknown]
  - Oral discomfort [Unknown]
  - Oral herpes [Unknown]
  - Dehydration [Unknown]
  - Malaise [Unknown]
  - Dysgeusia [Unknown]
  - Decreased appetite [Unknown]
  - Gastrointestinal disorder [Unknown]
  - Alopecia [Unknown]
